FAERS Safety Report 19087509 (Version 1)
Quarter: 2021Q2

REPORT INFORMATION
  Report Type: Spontaneous
  Country: US (occurrence: US)
  Receive Date: 20210402
  Receipt Date: 20210402
  Transmission Date: 20210717
  Serious: Yes (Other)
  Sender: FDA-Public Use
  Company Number: None

PATIENT
  Age: 72 Year
  Sex: Male
  Weight: 63.3 kg

DRUGS (1)
  1. TECARTUS [Suspect]
     Active Substance: BREXUCABTAGENE AUTOLEUCEL
     Indication: MANTLE CELL LYMPHOMA
     Dates: start: 20201020, end: 20210312

REACTIONS (6)
  - Pancytopenia [None]
  - Neurotoxicity [None]
  - Pneumonia aspiration [None]
  - Pyrexia [None]
  - Hypotension [None]
  - Retroperitoneal haematoma [None]

NARRATIVE: CASE EVENT DATE: 20201030
